FAERS Safety Report 4399279-4 (Version None)
Quarter: 2004Q3

REPORT INFORMATION
  Report Type: 
  Country: None (occurrence: None)
  Receive Date: 20040712
  Receipt Date: 20040623
  Transmission Date: 20050211
  Serious: Yes (Hospitalization)
  Sender: FDA-Public Use
  Company Number: F01200401105

PATIENT
  Age: 74 Year
  Sex: Female

DRUGS (21)
  1. (OXALIPLATIN) - SOLUTION - 85 MG/M2 [Suspect]
     Indication: COLORECTAL CANCER
     Dosage: 85 MG/M2 Q2W
     Route: 042
     Dates: start: 20031114, end: 20031114
  2. FLUOROURACIL [Suspect]
     Dosage: 500MG/M2 BOLUS ON D1, D8 AND D15, Q4W
     Route: 040
     Dates: start: 20031114, end: 20031114
  3. LEUCOVORIN CALCIUM [Suspect]
     Dosage: 20 MG/M2 ON D1, D8 AND D15, Q4W
     Route: 040
     Dates: start: 20031114, end: 20031114
  4. DOLASETRON MESILATE [Concomitant]
  5. PROCHLORPERAZINE [Concomitant]
  6. DARBEPOETIN (DARBEPOETIN ALFA) [Concomitant]
  7. CEFTAZIDIME [Concomitant]
  8. ACETAMINOPHEN [Concomitant]
  9. METRONIDAZOLE [Concomitant]
  10. FILGRASTIM [Concomitant]
  11. POTASSIUM [Concomitant]
  12. DIPHENOXYLATE HYDROCHLORIDE/ATROPINE SULFATE [Concomitant]
  13. LOPERAMIDE HCL (LOPERAMIDE HYDROCHLORIDE) [Concomitant]
  14. TENORMIN [Concomitant]
  15. ROXICET (OXYCODONE/ACETAMINOPHEN) [Concomitant]
  16. LORAZEPAM [Concomitant]
  17. MAGNESIUM SULFATE [Concomitant]
  18. MEPRIDINE (MEPERIDINE HYDROCHLORIDE) [Concomitant]
  19. DEXAMETHASONE SODIUM PHOSPHATE [Concomitant]
  20. POTASSIUM PHOSPHATE (POTASSIUM PHOSPHATE DIBASIC) [Concomitant]
  21. TRAVOPROST [Concomitant]

REACTIONS (13)
  - ASTHENIA [None]
  - ATRIAL FIBRILLATION [None]
  - BLOOD POTASSIUM DECREASED [None]
  - BLOOD PRESSURE SYSTOLIC INCREASED [None]
  - BLOOD THYROID STIMULATING HORMONE DECREASED [None]
  - DIARRHOEA [None]
  - ELECTROCARDIOGRAM ST-T CHANGE [None]
  - HAEMOGLOBIN DECREASED [None]
  - HEART RATE INCREASED [None]
  - RESPIRATORY RATE INCREASED [None]
  - SINUS TACHYCARDIA [None]
  - THYROXINE INCREASED [None]
  - VOMITING [None]
